FAERS Safety Report 25925257 (Version 1)
Quarter: 2025Q4

REPORT INFORMATION
  Report Type: Spontaneous
  Country: US (occurrence: None)
  Receive Date: 20251013
  Receipt Date: 20251013
  Transmission Date: 20260119
  Serious: Yes (Hospitalization, Disabling, Other)
  Sender: FDA-CTU
  Company Number: None

PATIENT
  Age: 44 Year
  Sex: Male
  Weight: 110.25 kg

DRUGS (5)
  1. SERTRALINE [Suspect]
     Active Substance: SERTRALINE HYDROCHLORIDE
     Indication: Fatigue
     Dosage: FREQUENCY : DAILY;?
     Route: 048
     Dates: start: 20220912, end: 20220918
  2. Vitamins D [Concomitant]
     Dosage: OTHER STRENGTH : 50MG/DAY (100MG PI;?OTHER QUANTITY : 0.5 CAPSULES;?FREQUENCY : DAILY;?
     Route: 048
     Dates: start: 20220912, end: 20220918
  3. Vitamins B Complex [Concomitant]
  4. ZINC [Concomitant]
     Active Substance: ZINC
  5. MAGNESIUM [Concomitant]
     Active Substance: MAGNESIUM

REACTIONS (15)
  - Mental impairment [None]
  - Taste disorder [None]
  - Impaired work ability [None]
  - Disturbance in attention [None]
  - Amnesia [None]
  - Therapy interrupted [None]
  - Insomnia [None]
  - Fatigue [None]
  - Confusional state [None]
  - Memory impairment [None]
  - Memory impairment [None]
  - Brain injury [None]
  - Fatigue [None]
  - Impaired quality of life [None]
  - Akathisia [None]

NARRATIVE: CASE EVENT DATE: 20220912
